FAERS Safety Report 18635893 (Version 1)
Quarter: 2020Q4

REPORT INFORMATION
  Report Type: Spontaneous
  Country: US (occurrence: US)
  Receive Date: 20201218
  Receipt Date: 20201218
  Transmission Date: 20210114
  Serious: Yes (Hospitalization)
  Sender: FDA-Public Use
  Company Number: US-FRESENIUS MEDICAL CARE RENAL THERAPIES GROUP-FMC-2012-001554

PATIENT
  Age: 61 Year
  Sex: Male
  Weight: 89.5 kg

DRUGS (2)
  1. DELFLEX WITH DEXTROSE 1.5% LOW MAGNESIUM LOW CALCIUM [Suspect]
     Active Substance: CALCIUM CHLORIDE\DEXTROSE\MAGNESIUM CHLORIDE\SODIUM CHLORIDE\SODIUM LACTATE
     Indication: END STAGE RENAL DISEASE
     Dosage: 3000 ML FOR 4 CYCLES, WITH A LAST FILL OF 2500 ML, NO DAYTIME EXCHANGE; SINCE 2017
     Route: 033
     Dates: start: 2017
  2. DELFLEX WITH DEXTROSE 2.5% LOW MAGNESIUM LOW CALCIUM [Suspect]
     Active Substance: CALCIUM CHLORIDE\DEXTROSE\MAGNESIUM CHLORIDE\SODIUM CHLORIDE\SODIUM LACTATE
     Indication: END STAGE RENAL DISEASE
     Dosage: 3000 ML FOR 4 CYCLES, WITH A LAST FILL OF 2500 ML, NO DAYTIME EXCHANGE; SINCE 2017
     Route: 033
     Dates: start: 2017

REACTIONS (3)
  - Azotaemia [Unknown]
  - Diarrhoea [Unknown]
  - Infection [Unknown]
